FAERS Safety Report 5881022-0 (Version None)
Quarter: 2008Q3

REPORT INFORMATION
  Report Type: 
  Country: None (occurrence: None)
  Receive Date: 20080912
  Receipt Date: 20080901
  Transmission Date: 20090109
  Serious: Yes (Hospitalization)
  Sender: FDA-Public Use
  Company Number: JP-GILEAD-2005-0008104

PATIENT
  Sex: Male

DRUGS (14)
  1. VIREAD [Suspect]
     Indication: HIV INFECTION
     Route: 048
     Dates: start: 20020917, end: 20050626
  2. CLARITHROMYCIN [Suspect]
     Indication: MYCOBACTERIUM AVIUM COMPLEX INFECTION
     Route: 048
     Dates: start: 20020911
  3. CLARITHROMYCIN [Suspect]
     Route: 048
     Dates: start: 20020110, end: 20020909
  4. ETHAMBUTOL HCL [Suspect]
     Indication: MYCOBACTERIUM AVIUM COMPLEX INFECTION
     Route: 048
     Dates: start: 20030401
  5. LECTISOL [Suspect]
     Indication: INFECTION PROPHYLAXIS
     Route: 048
     Dates: start: 20030401
  6. ABELCET [Suspect]
     Indication: BRONCHOPULMONARY ASPERGILLOSIS
     Dates: start: 20030424, end: 20030427
  7. ABELCET [Suspect]
     Dates: start: 20030422, end: 20030423
  8. ITRIZOLE [Suspect]
     Indication: BRONCHOPULMONARY ASPERGILLOSIS
     Route: 048
     Dates: start: 20030428, end: 20030526
  9. RIFABUTIN [Suspect]
     Indication: MYCOBACTERIUM AVIUM COMPLEX INFECTION
     Route: 048
     Dates: start: 20030401
  10. EPIVIR [Concomitant]
     Indication: HIV INFECTION
     Dates: start: 20020917
  11. EPIVIR [Concomitant]
     Dates: start: 20010928, end: 20020909
  12. VIRACEPT [Concomitant]
     Indication: HIV INFECTION
     Dates: start: 20020917, end: 20050619
  13. ABACAVIR SULFATE [Concomitant]
     Dates: start: 20050626
  14. VIRAMUNE [Concomitant]
     Dates: start: 20050415

REACTIONS (6)
  - ANAEMIA [None]
  - BRONCHOPULMONARY ASPERGILLOSIS [None]
  - HYPOGEUSIA [None]
  - PLATELET COUNT DECREASED [None]
  - RENAL IMPAIRMENT [None]
  - WHITE BLOOD CELL COUNT DECREASED [None]
